FAERS Safety Report 10238302 (Version 1)
Quarter: 2014Q2

REPORT INFORMATION
  Report Type: Report from Study
  Country: PT (occurrence: PT)
  Receive Date: 20140616
  Receipt Date: 20140616
  Transmission Date: 20141212
  Serious: Yes (Other)
  Sender: FDA-Public Use
  Company Number: PT-JNJFOC-20140607431

PATIENT
  Age: 77 Year
  Sex: Male

DRUGS (5)
  1. PALEXIA RETARD 50 MG COMPRIMIDOS DE LIBERACION PROLONGADA [Suspect]
     Indication: SCIATICA
     Route: 048
  2. PALEXIA RETARD 50 MG COMPRIMIDOS DE LIBERACION PROLONGADA [Suspect]
     Indication: SCIATICA
     Route: 048
  3. PALEXIA RETARD 50 MG COMPRIMIDOS DE LIBERACION PROLONGADA [Suspect]
     Indication: POST HERPETIC NEURALGIA
     Route: 048
  4. PALEXIA RETARD 50 MG COMPRIMIDOS DE LIBERACION PROLONGADA [Suspect]
     Indication: POST HERPETIC NEURALGIA
     Route: 048
  5. LYRICA [Concomitant]
     Indication: PRODUCT USED FOR UNKNOWN INDICATION
     Route: 065

REACTIONS (1)
  - Myalgia [Unknown]
